FAERS Safety Report 8030563-9 (Version None)
Quarter: 2012Q1

REPORT INFORMATION
  Report Type: 
  Country: None (occurrence: None)
  Receive Date: 20120109
  Receipt Date: 20111229
  Transmission Date: 20120608
  Serious: Yes (Other)
  Sender: FDA-Public Use
  Company Number: ES-SANOFI-AVENTIS-2011SA085623

PATIENT
  Age: 86 Year
  Sex: Female
  Weight: 80 kg

DRUGS (1)
  1. MULTAQ [Suspect]
     Route: 065
     Dates: start: 20101214, end: 20110204

REACTIONS (6)
  - PAIN [None]
  - DYSPNOEA [None]
  - BLOOD UREA INCREASED [None]
  - NORMOCHROMIC NORMOCYTIC ANAEMIA [None]
  - ASTHENIA [None]
  - BLOOD CREATININE INCREASED [None]
